FAERS Safety Report 9052379 (Version 1)
Quarter: 2013Q1

REPORT INFORMATION
  Report Type: Spontaneous
  Country: US (occurrence: US)
  Receive Date: 20130207
  Receipt Date: 20130207
  Transmission Date: 20140127
  Serious: Yes (Hospitalization, Other)
  Sender: FDA-Public Use
  Company Number: US-BRISTOL-MYERS SQUIBB COMPANY-17267303

PATIENT
  Age: 19 Year
  Sex: Female

DRUGS (2)
  1. SPRYCEL [Suspect]
     Indication: ACUTE LYMPHOCYTIC LEUKAEMIA
     Dosage: BED TIME
     Dates: start: 20120501
  2. VALACICLOVIR [Suspect]

REACTIONS (7)
  - Renal failure [Unknown]
  - Hypertension [Unknown]
  - Proteinuria [Unknown]
  - Neutropenia [Unknown]
  - Thrombocytopenia [Unknown]
  - Anaemia [Unknown]
  - Thrombotic microangiopathy [Unknown]
